FAERS Safety Report 7623581-3 (Version None)
Quarter: 2011Q3

REPORT INFORMATION
  Report Type: 
  Country: None (occurrence: None)
  Receive Date: 20110712
  Receipt Date: 20110628
  Transmission Date: 20111222
  Serious: Yes (Death, Hospitalization, Other)
  Sender: FDA-Public Use
  Company Number: 2010AC000127

PATIENT
  Age: 88 Year
  Sex: Female

DRUGS (25)
  1. MULTI-VITAMIN [Concomitant]
  2. METOPROLOL TARTRATE [Concomitant]
  3. PEPCID [Concomitant]
  4. PROZAC [Concomitant]
  5. FLAGYL [Concomitant]
  6. POTASSIUM CHLORIDE [Concomitant]
  7. DIGOXIN [Suspect]
     Indication: ATRIAL FIBRILLATION
     Dosage: 0.125 MG;QD;PO
     Route: 048
     Dates: start: 20040201, end: 20080201
  8. LUTEIN [Concomitant]
  9. FUROSEMIDE [Concomitant]
  10. DEMEROL [Concomitant]
  11. ASCORBIC ACID [Concomitant]
  12. ZITHROMAX [Concomitant]
  13. DIGOXIN [Suspect]
     Dosage: 0.625 MG;QD;PO
     Route: 048
     Dates: start: 20061101, end: 20080219
  14. ASPIRIN [Concomitant]
  15. XANAX [Concomitant]
  16. FERROUS SULFATE TAB [Concomitant]
  17. TYLENOL-500 [Concomitant]
  18. ENALAPRIL MALEATE [Concomitant]
  19. CIPROFLOXACIN HCL [Concomitant]
  20. DUONEB [Concomitant]
  21. HALDOL [Concomitant]
  22. PLAVIX [Concomitant]
  23. LEVAQUIN [Concomitant]
  24. WARFARIN [Concomitant]
  25. SYNTHROID [Concomitant]

REACTIONS (70)
  - REFUSAL OF TREATMENT BY PATIENT [None]
  - PNEUMONIA INFLUENZAL [None]
  - HAEMATOCRIT DECREASED [None]
  - MENTAL STATUS CHANGES [None]
  - OEDEMA PERIPHERAL [None]
  - ATRIAL FIBRILLATION [None]
  - HYPONATRAEMIA [None]
  - CONFUSIONAL STATE [None]
  - HAEMOGLOBIN DECREASED [None]
  - DIVERTICULITIS [None]
  - VENTRICULAR EXTRASYSTOLES [None]
  - HALLUCINATION [None]
  - TRANSIENT ISCHAEMIC ATTACK [None]
  - AGITATION [None]
  - FAMILY STRESS [None]
  - AORTIC STENOSIS [None]
  - TRICUSPID VALVE INCOMPETENCE [None]
  - PULMONARY HYPERTENSION [None]
  - ABDOMINAL PAIN [None]
  - LACERATION [None]
  - CEREBELLAR ATROPHY [None]
  - CEREBRAL INFARCTION [None]
  - THROMBOSIS [None]
  - WOUND DEHISCENCE [None]
  - CARDIAC FAILURE CONGESTIVE [None]
  - MITRAL VALVE INCOMPETENCE [None]
  - ARRHYTHMIA [None]
  - NAUSEA [None]
  - PULMONARY MASS [None]
  - AORTIC CALCIFICATION [None]
  - FALL [None]
  - TOXICITY TO VARIOUS AGENTS [None]
  - FAECES DISCOLOURED [None]
  - CONVULSION [None]
  - CARDIOMEGALY [None]
  - HIATUS HERNIA [None]
  - CEREBRAL ATROPHY [None]
  - BRADYCARDIA [None]
  - WOUND INFECTION STAPHYLOCOCCAL [None]
  - AORTIC VALVE STENOSIS [None]
  - ANXIETY [None]
  - GASTROINTESTINAL HAEMORRHAGE [None]
  - DEHYDRATION [None]
  - LUNG HYPERINFLATION [None]
  - PLEURAL EFFUSION [None]
  - SMALL INTESTINAL OBSTRUCTION [None]
  - FATIGUE [None]
  - ARTERIAL THROMBOSIS LIMB [None]
  - RENAL FAILURE ACUTE [None]
  - RENAL FAILURE CHRONIC [None]
  - MULTIPLE INJURIES [None]
  - BLOOD PRESSURE INCREASED [None]
  - BUNDLE BRANCH BLOCK RIGHT [None]
  - ELECTROCARDIOGRAM T WAVE ABNORMAL [None]
  - URINARY TRACT INFECTION [None]
  - LEFT ATRIAL DILATATION [None]
  - EJECTION FRACTION DECREASED [None]
  - ASTHENIA [None]
  - DIARRHOEA [None]
  - PLEURAL DISORDER [None]
  - BLOOD THYROID STIMULATING HORMONE INCREASED [None]
  - ABDOMINAL MASS [None]
  - AGGRESSION [None]
  - PAIN [None]
  - ECONOMIC PROBLEM [None]
  - AORTIC VALVE INCOMPETENCE [None]
  - HEART RATE INCREASED [None]
  - MASS [None]
  - SPINAL COMPRESSION FRACTURE [None]
  - REFUSAL OF TREATMENT BY RELATIVE [None]
